FAERS Safety Report 9600679 (Version 1)
Quarter: 2013Q4

REPORT INFORMATION
  Report Type: Spontaneous
  Country: US (occurrence: US)
  Receive Date: 20131004
  Receipt Date: 20131004
  Transmission Date: 20140711
  Serious: No
  Sender: FDA-Public Use
  Company Number: US-AMGEN-USASP2013037012

PATIENT
  Age: 53 Year
  Sex: Female
  Weight: 70.3 kg

DRUGS (6)
  1. ENBREL [Suspect]
     Indication: PRODUCT USED FOR UNKNOWN INDICATION
     Dosage: 50 MG, QWK
  2. ESTRACE [Concomitant]
     Dosage: 1 MG, UNK
  3. MULTIVITAMINS, PLAIN [Concomitant]
     Dosage: UNK
  4. VITAMIN D                          /00107901/ [Concomitant]
     Dosage: 1000 UNIT, UNK
  5. CALCIUM 500+D [Concomitant]
     Dosage: 500 UNK, UNK
  6. VITAMIN C                          /00008001/ [Concomitant]
     Dosage: 500 MG, UNK

REACTIONS (1)
  - Influenza [Unknown]
